FAERS Safety Report 5495053-6 (Version None)
Quarter: 2007Q4

REPORT INFORMATION
  Report Type: 
  Country: None (occurrence: None)
  Receive Date: 20071024
  Receipt Date: 20071010
  Transmission Date: 20080405
  Serious: Yes (Hospitalization)
  Sender: FDA-Public Use
  Company Number: NL-RANBAXY-2007RR-10674

PATIENT

DRUGS (1)
  1. IBUPROFENE RPG 400MG COMPRIME PELLICULE [Suspect]
     Dosage: 400 MG, UNK

REACTIONS (1)
  - HAEMOLYTIC URAEMIC SYNDROME [None]
